FAERS Safety Report 6438591-1 (Version None)
Quarter: 2009Q4

REPORT INFORMATION
  Report Type: 
  Country: None (occurrence: None)
  Receive Date: 20091110
  Receipt Date: 20091026
  Transmission Date: 20100525
  Serious: Yes (Hospitalization, Other)
  Sender: FDA-Public Use
  Company Number: 2009AC000272

PATIENT
  Age: 65 Year
  Sex: Male

DRUGS (20)
  1. DIGOXIN [Suspect]
     Dosage: 0.25 MG; QD; PO
     Route: 048
     Dates: start: 20060601, end: 20080501
  2. TAUROCYAMIN [Concomitant]
  3. DEMADEX [Concomitant]
  4. ZAROXOLYN [Concomitant]
  5. K-DUR [Concomitant]
  6. VITAMIN B-12 [Concomitant]
  7. FOLIC ACID [Concomitant]
  8. ASPIRIN [Concomitant]
  9. TOPROL-XL [Concomitant]
  10. HYDROCODONE [Concomitant]
  11. ZETIA [Concomitant]
  12. PRIMARIA [Concomitant]
  13. NORTRIPTYLINE HCL [Concomitant]
  14. PAXIL [Concomitant]
  15. FLOMAX [Concomitant]
  16. ISOSORBIDE [Concomitant]
  17. ENALAPRIL MALEATE [Concomitant]
  18. ALPRAZOLAM [Concomitant]
  19. VASOTEC [Concomitant]
  20. AMIODARONE HCL [Concomitant]

REACTIONS (16)
  - ASTHENIA [None]
  - BLOOD POTASSIUM INCREASED [None]
  - CARDIAC FLUTTER [None]
  - COUGH [None]
  - ECONOMIC PROBLEM [None]
  - FATIGUE [None]
  - INCREASED TENDENCY TO BRUISE [None]
  - MULTIPLE INJURIES [None]
  - OEDEMA PERIPHERAL [None]
  - PRODUCTIVE COUGH [None]
  - RETINAL DISORDER [None]
  - SUBDURAL HAEMATOMA [None]
  - TEMPERATURE INTOLERANCE [None]
  - THIRST [None]
  - VENTRICULAR TACHYCARDIA [None]
  - VISUAL IMPAIRMENT [None]
